FAERS Safety Report 19454421 (Version 3)
Quarter: 2022Q1

REPORT INFORMATION
  Report Type: Spontaneous
  Country: US (occurrence: US)
  Receive Date: 20210623
  Receipt Date: 20220112
  Transmission Date: 20220423
  Serious: No
  Sender: FDA-Public Use
  Company Number: US-GW PHARMA-202106USGW03004

PATIENT

DRUGS (3)
  1. EPIDIOLEX [Suspect]
     Active Substance: CANNABIDIOL
     Indication: Lennox-Gastaut syndrome
     Dosage: 1160 MILLIGRAM
     Route: 048
     Dates: start: 20200505
  2. EPIDIOLEX [Suspect]
     Active Substance: CANNABIDIOL
     Dosage: 1140 MILLIGRAM
     Route: 048
     Dates: start: 202101
  3. EPIDIOLEX [Suspect]
     Active Substance: CANNABIDIOL
     Dosage: 810 MILLIGRAM
     Route: 048
     Dates: start: 202112

REACTIONS (2)
  - Weight increased [Unknown]
  - Weight increased [Not Recovered/Not Resolved]

NARRATIVE: CASE EVENT DATE: 20210101
